FAERS Safety Report 21921066 (Version 1)
Quarter: 2023Q1

REPORT INFORMATION
  Report Type: Spontaneous
  Country: US (occurrence: US)
  Receive Date: 20230127
  Receipt Date: 20230127
  Transmission Date: 20230417
  Serious: Yes (Hospitalization, Other)
  Sender: FDA-Public Use
  Company Number: US-SA-2023SA028648

PATIENT
  Age: 30 Year
  Sex: Male

DRUGS (2)
  1. DUPILUMAB [Suspect]
     Active Substance: DUPILUMAB
     Indication: Eczema
     Dosage: UNK
  2. CORTICOSTEROID NOS [Suspect]
     Active Substance: CORTICOSTEROID NOS
     Indication: HIV infection
     Dosage: UNK

REACTIONS (16)
  - Eczema herpeticum [Unknown]
  - Superinfection viral [Unknown]
  - Rash erythematous [Unknown]
  - Rash pruritic [Unknown]
  - Rash [Unknown]
  - Oropharyngeal pain [Unknown]
  - Abscess drainage [Unknown]
  - Erythema [Unknown]
  - Skin erosion [Unknown]
  - Scab [Unknown]
  - Dry skin [Unknown]
  - Lymphadenopathy [Unknown]
  - Skin fissures [Unknown]
  - Pyrexia [Unknown]
  - Enterobacter infection [Unknown]
  - Herpes simplex [Unknown]
